FAERS Safety Report 10283851 (Version 2)
Quarter: 2014Q3

REPORT INFORMATION
  Report Type: Spontaneous
  Country: BR (occurrence: BR)
  Receive Date: 20140708
  Receipt Date: 20140717
  Transmission Date: 20150326
  Serious: Yes (Hospitalization)
  Sender: FDA-Public Use
  Company Number: BR-ASTRAZENECA-2014SE47979

PATIENT
  Age: 28 Year
  Sex: Male

DRUGS (6)
  1. SEROQUEL [Suspect]
     Active Substance: QUETIAPINE FUMARATE
     Indication: BIPOLAR DISORDER
     Route: 048
  2. SEROQUEL [Suspect]
     Active Substance: QUETIAPINE FUMARATE
     Indication: BIPOLAR DISORDER
     Route: 048
     Dates: start: 2009, end: 201406
  3. TOPAMAX [Concomitant]
     Active Substance: TOPIRAMATE
     Indication: ALCOHOL ABUSE
  4. RISPERIDONA [Concomitant]
     Active Substance: RISPERIDONE
  5. RIVOTRIL [Concomitant]
     Active Substance: CLONAZEPAM
  6. SEROQUEL [Suspect]
     Active Substance: QUETIAPINE FUMARATE
     Indication: BIPOLAR DISORDER
     Route: 048

REACTIONS (2)
  - Bipolar disorder [Recovered/Resolved]
  - Drug ineffective [Unknown]
